FAERS Safety Report 14266961 (Version 4)
Quarter: 2019Q1

REPORT INFORMATION
  Report Type: Spontaneous
  Country: JP (occurrence: JP)
  Receive Date: 20171211
  Receipt Date: 20190225
  Transmission Date: 20190417
  Serious: Yes (Death, Hospitalization, Other)
  Sender: FDA-Public Use
  Company Number: JP-ROCHE-2037584

PATIENT
  Age: 61 Year
  Sex: Male

DRUGS (10)
  1. IRINOTECAN HYDROCHLORIDE. [Suspect]
     Active Substance: IRINOTECAN HYDROCHLORIDE
     Indication: COLON CANCER
     Dosage: DOSAGE IS UNCERTAIN.
     Route: 041
  2. FLUOROURACIL. [Concomitant]
     Active Substance: FLUOROURACIL
     Route: 040
  3. CETUXIMAB. [Concomitant]
     Active Substance: CETUXIMAB
     Indication: COLON CANCER
     Route: 041
     Dates: start: 201603
  4. OXALIPLATIN. [Suspect]
     Active Substance: OXALIPLATIN
     Indication: COLON CANCER
     Dosage: DOSAGE IS UNCERTAIN.
     Route: 041
  5. FOLINIC ACID [Concomitant]
     Active Substance: LEUCOVORIN
  6. FLUOROURACIL. [Concomitant]
     Active Substance: FLUOROURACIL
     Indication: COLON CANCER
     Route: 065
     Dates: start: 201406
  7. FLUOROURACIL. [Concomitant]
     Active Substance: FLUOROURACIL
     Route: 041
  8. FLUOROURACIL. [Concomitant]
     Active Substance: FLUOROURACIL
     Route: 065
     Dates: start: 201504
  9. AVASTIN [Suspect]
     Active Substance: BEVACIZUMAB
     Indication: COLON CANCER
     Dosage: DOSAGE IS UNCERTAIN.
     Route: 041
     Dates: start: 201602
  10. IRINOTECAN [Concomitant]
     Active Substance: IRINOTECAN

REACTIONS (8)
  - Colon cancer [Fatal]
  - Platelet count decreased [Unknown]
  - Splenomegaly [Not Recovered/Not Resolved]
  - Duodenal ulcer [Unknown]
  - Disseminated intravascular coagulation [Unknown]
  - Varices oesophageal [Unknown]
  - Duodenal varices [Recovering/Resolving]
  - Enteritis infectious [Unknown]

NARRATIVE: CASE EVENT DATE: 201606
